FAERS Safety Report 4686602-6 (Version None)
Quarter: 2005Q2

REPORT INFORMATION
  Report Type: 
  Country: None (occurrence: None)
  Receive Date: 20050607
  Receipt Date: 20050526
  Transmission Date: 20051028
  Serious: Yes (Death)
  Sender: FDA-Public Use
  Company Number: 2004117310

PATIENT
  Age: 44 Year
  Sex: Female
  Weight: 68.0396 kg

DRUGS (8)
  1. NEURONTIN [Suspect]
     Indication: BIPOLAR DISORDER
     Dosage: 800 MG (1 D)
     Dates: start: 20011030
  2. IBUPROFEN [Suspect]
     Indication: ILL-DEFINED DISORDER
  3. AMITRIPTYLINE HYDROCHLORIDE [Suspect]
     Indication: ILL-DEFINED DISORDER
  4. NORTRIPTYLINE HCL [Suspect]
     Indication: ILL-DEFINED DISORDER
  5. VENLAFAXINE HCL [Suspect]
     Indication: ILL-DEFINED DISORDER
  6. OXAZEPAM [Concomitant]
  7. BENZODIAZEPINE DERIVATIVES (BENZODIAZEPINE DERIVATIVES) [Concomitant]
  8. OPIOIDS (OPIOIDS) [Concomitant]

REACTIONS (4)
  - COMPLETED SUICIDE [None]
  - DRUG INEFFECTIVE [None]
  - LOSS OF CONSCIOUSNESS [None]
  - MULTIPLE DRUG OVERDOSE ACCIDENTAL [None]
